FAERS Safety Report 8535194-X (Version None)
Quarter: 2012Q3

REPORT INFORMATION
  Report Type: 
  Country: None (occurrence: None)
  Receive Date: 20120724
  Receipt Date: 20120709
  Transmission Date: 20120928
  Serious: Yes (Other)
  Sender: FDA-Public Use
  Company Number: CHPA2012US015205

PATIENT
  Age: 79 Year
  Sex: Female

DRUGS (1)
  1. BENEFIBER W/ WHEAT DEXTRIN [Suspect]
     Indication: NUTRITIONAL SUPPORT
     Dosage: 2 TSP, TID
     Route: 048
     Dates: start: 20110501, end: 20120601

REACTIONS (4)
  - CHOKING [None]
  - THYROID NEOPLASM [None]
  - GOITRE [None]
  - RETCHING [None]
